FAERS Safety Report 4347264-0 (Version None)
Quarter: 2004Q1

REPORT INFORMATION
  Report Type: 
  Country: None (occurrence: None)
  Receive Date: 20040325
  Receipt Date: 20040129
  Transmission Date: 20041129
  Serious: No
  Sender: FDA-Public Use
  Company Number: USA040158007

PATIENT
  Age: 54 Year
  Sex: Female

DRUGS (4)
  1. FORTEO [Suspect]
     Indication: OSTEOPOROSIS
     Dates: start: 20040101
  2. MIACALCIN [Concomitant]
  3. CALCIUM [Concomitant]
  4. MULTI-VITAMINS [Concomitant]

REACTIONS (1)
  - INJECTION SITE HAEMORRHAGE [None]
